FAERS Safety Report 19826306 (Version 8)
Quarter: 2022Q4

REPORT INFORMATION
  Report Type: Spontaneous
  Country: US (occurrence: US)
  Receive Date: 20210914
  Receipt Date: 20221012
  Transmission Date: 20230113
  Serious: Yes (Hospitalization)
  Sender: FDA-Public Use
  Company Number: US-BIOGEN-2021BI01047768

PATIENT
  Sex: Female

DRUGS (9)
  1. TYSABRI [Suspect]
     Active Substance: NATALIZUMAB
     Indication: Multiple sclerosis
     Route: 050
     Dates: start: 20100330
  2. AMBIEN [Concomitant]
     Active Substance: ZOLPIDEM TARTRATE
     Indication: Product used for unknown indication
     Dosage: QUANTITY 90
     Route: 050
  3. BIOTIN [Concomitant]
     Active Substance: BIOTIN
     Indication: Product used for unknown indication
     Dosage: QUANTITY 30
     Route: 050
  4. CYANOCOBALAMIN [Concomitant]
     Active Substance: CYANOCOBALAMIN
     Indication: Product used for unknown indication
     Dosage: VITAMIN B 12 (VIAL) QUANTITY 12, 1000 MCG/ML
     Route: 050
  5. HYDROXYCHLOROQUINE [Concomitant]
     Active Substance: HYDROXYCHLOROQUINE
     Indication: Product used for unknown indication
     Dosage: QUANTITY 30
     Route: 050
  6. LEVOTHYROXINE [Concomitant]
     Active Substance: LEVOTHYROXINE
     Indication: Product used for unknown indication
     Dosage: QUANTITY 45, ONE AND ONE-HALF TABLET BY MOUTH ONE TIME
     Route: 050
  7. TAMOXIFEN [Concomitant]
     Active Substance: TAMOXIFEN
     Indication: Product used for unknown indication
     Route: 050
  8. VITAMIN D3 [Concomitant]
     Active Substance: CHOLECALCIFEROL
     Indication: Product used for unknown indication
     Dosage: QUANTITY 30, 5000 UNITS
     Route: 050
  9. VYVANSE [Concomitant]
     Active Substance: LISDEXAMFETAMINE DIMESYLATE
     Indication: Product used for unknown indication
     Dosage: QUANTITY 30
     Route: 050

REACTIONS (9)
  - Breast cancer female [Recovered/Resolved]
  - Post procedural infection [Recovered/Resolved]
  - Capsular contracture associated with breast implant [Unknown]
  - Eating disorder [Unknown]
  - Insomnia [Unknown]
  - Procedural complication [Not Recovered/Not Resolved]
  - Nausea [Unknown]
  - Tremor [Unknown]
  - Multiple sclerosis [Unknown]

NARRATIVE: CASE EVENT DATE: 20190101
